FAERS Safety Report 5747008-1 (Version None)
Quarter: 2008Q2

REPORT INFORMATION
  Report Type: 
  Country: None (occurrence: None)
  Receive Date: 20080522
  Receipt Date: 20080515
  Transmission Date: 20081010
  Serious: Yes (Other)
  Sender: FDA-Public Use
  Company Number: US-GENENTECH-261209

PATIENT

DRUGS (2)
  1. AVASTIN [Suspect]
     Indication: COLON CANCER METASTATIC
  2. RADIATION [Concomitant]
     Indication: COLON CANCER METASTATIC

REACTIONS (1)
  - METASTASES TO LIVER [None]
